FAERS Safety Report 15307652 (Version 2)
Quarter: 2019Q1

REPORT INFORMATION
  Report Type: Spontaneous
  Country: US (occurrence: US)
  Receive Date: 20180822
  Receipt Date: 20190124
  Transmission Date: 20190417
  Serious: Yes (Hospitalization)
  Sender: FDA-Public Use
  Company Number: US-VIFOR (INTERNATIONAL) INC.-VIT-2018-08265

PATIENT
  Age: 66 Year
  Sex: Male

DRUGS (11)
  1. VELTASSA [Suspect]
     Active Substance: PATIROMER
     Indication: HYPERKALAEMIA
     Route: 048
     Dates: start: 20161027
  2. PRORENAL/D [Concomitant]
  3. PAROXETINE HCL [Concomitant]
     Active Substance: PAROXETINE HYDROCHLORIDE
  4. CALCITRIOL. [Concomitant]
     Active Substance: CALCITRIOL
  5. NOVOLIN R [Concomitant]
     Active Substance: INSULIN HUMAN
  6. ATORVASTATIN CALCIUM. [Concomitant]
     Active Substance: ATORVASTATIN CALCIUM
  7. ASPIRIN. [Concomitant]
     Active Substance: ASPIRIN
  8. RENVELA [Concomitant]
     Active Substance: SEVELAMER CARBONATE
  9. HYDRALAZINE HCL [Concomitant]
     Active Substance: HYDRALAZINE HYDROCHLORIDE
  10. AMLODIPINE BESYLATE. [Concomitant]
     Active Substance: AMLODIPINE BESYLATE
  11. LASIX [Concomitant]
     Active Substance: FUROSEMIDE

REACTIONS (4)
  - Product dose omission [Unknown]
  - Upper limb fracture [Unknown]
  - Hernia [Unknown]
  - Blood potassium increased [Unknown]

NARRATIVE: CASE EVENT DATE: 20180813
